FAERS Safety Report 13420358 (Version 2)
Quarter: 2017Q2

REPORT INFORMATION
  Report Type: Spontaneous
  Country: DE (occurrence: DE)
  Receive Date: 20170407
  Receipt Date: 20170518
  Transmission Date: 20170830
  Serious: Yes (Life-Threatening)
  Sender: FDA-Public Use
  Company Number: DE-TORRENT-00006346

PATIENT
  Age: 84 Year
  Sex: Female
  Weight: 60 kg

DRUGS (6)
  1. MIRTAZAPINE. [Suspect]
     Active Substance: MIRTAZAPINE
  2. DIBENZAZEPINE [Concomitant]
  3. CITALOPRAM [Suspect]
     Active Substance: CITALOPRAM HYDROBROMIDE
  4. ARTERENOL [Concomitant]
     Active Substance: NORADRENALINE HYDROCHLORIDE
  5. OPIPRAMOL [Concomitant]
     Active Substance: OPIPRAMOL
  6. PHENPROCOUMON [Suspect]
     Active Substance: PHENPROCOUMON

REACTIONS (8)
  - Overdose [Not Recovered/Not Resolved]
  - Acute kidney injury [Not Recovered/Not Resolved]
  - Toxicity to various agents [Not Recovered/Not Resolved]
  - Coma [Not Recovered/Not Resolved]
  - Skin haemorrhage [Not Recovered/Not Resolved]
  - Bradypnoea [Not Recovered/Not Resolved]
  - Anaemia [Not Recovered/Not Resolved]
  - Suicidal ideation [Not Recovered/Not Resolved]

NARRATIVE: CASE EVENT DATE: 20170226
